FAERS Safety Report 10611196 (Version 1)
Quarter: 2014Q4

REPORT INFORMATION
  Report Type: Spontaneous
  Country: JP (occurrence: None)
  Receive Date: 20141124
  Receipt Date: 20141124
  Transmission Date: 20150529
  Serious: Yes (Other)
  Sender: FDA-Public Use
  Company Number: JP-017782

PATIENT
  Age: 85 Year
  Sex: Male

DRUGS (1)
  1. DEGARELIX (GONAX) 80 MG [Suspect]
     Active Substance: DEGARELIX
     Indication: PROSTATE CANCER
     Dosage: 1X/4 WEEKS
     Route: 058
     Dates: start: 20140725, end: 20141017

REACTIONS (3)
  - Skin discolouration [None]
  - Vascular insufficiency [None]
  - Intentional product misuse [None]

NARRATIVE: CASE EVENT DATE: 20140725
